FAERS Safety Report 12714105 (Version 1)
Quarter: 2016Q3

REPORT INFORMATION
  Report Type: Spontaneous
  Country: US (occurrence: US)
  Receive Date: 20160905
  Receipt Date: 20160905
  Transmission Date: 20161109
  Serious: No
  Sender: FDA-Public Use
  Company Number: US-JAZZ-2016-US-006798

PATIENT
  Age: 29 Year
  Sex: Female

DRUGS (18)
  1. XYREM [Suspect]
     Active Substance: SODIUM OXYBATE
     Indication: NARCOLEPSY
     Dosage: 2.25 G, BID
     Route: 048
     Dates: start: 201210, end: 201210
  2. DEXEDRINE [Concomitant]
     Active Substance: DEXTROAMPHETAMINE SULFATE
  3. MULTIVITAMINS [Concomitant]
     Active Substance: VITAMINS
  4. RITALIN [Concomitant]
     Active Substance: METHYLPHENIDATE HYDROCHLORIDE
  5. VITAMIN B COMPLEX [Concomitant]
     Active Substance: CYANOCOBALAMIN\DEXPANTHENOL\NIACINAMIDE\PYRIDOXINE HYDROCHLORIDE\RIBOFLAVIN 5^-PHOSPHATE SODIUM\THIAMINE HYDROCHLORIDE\VITAMIN B COMPLEX
  6. FISH OIL CONCENTRATE [Concomitant]
  7. XYREM [Suspect]
     Active Substance: SODIUM OXYBATE
     Dosage: 4.5 G, BID
     Route: 048
     Dates: start: 201210
  8. RISPERDAL [Concomitant]
     Active Substance: RISPERIDONE
  9. METHYLPHENIDATE HCL CD [Concomitant]
  10. XYREM [Suspect]
     Active Substance: SODIUM OXYBATE
     Indication: CATAPLEXY
     Dosage: DOSE ADJUSTMENTS
     Route: 048
  11. PROBIOTIC [Concomitant]
     Active Substance: PROBIOTICS NOS
  12. DEXEDRINE [Concomitant]
     Active Substance: DEXTROAMPHETAMINE SULFATE
  13. METAMUCIL [Concomitant]
     Active Substance: PLANTAGO SEED
  14. LAMICTAL [Concomitant]
     Active Substance: LAMOTRIGINE
  15. ADDERALL [Concomitant]
     Active Substance: AMPHETAMINE ASPARTATE\AMPHETAMINE SULFATE\DEXTROAMPHETAMINE SACCHARATE\DEXTROAMPHETAMINE SULFATE
  16. ZOLOFT [Concomitant]
     Active Substance: SERTRALINE HYDROCHLORIDE
  17. CITRACAL + D [Concomitant]
     Active Substance: CALCIUM CITRATE\VITAMIN D
  18. AMANTADINE [Concomitant]
     Active Substance: AMANTADINE

REACTIONS (3)
  - Wrong technique in product usage process [Unknown]
  - Sudden onset of sleep [Unknown]
  - Feeling abnormal [Unknown]

NARRATIVE: CASE EVENT DATE: 201511
